FAERS Safety Report 17850508 (Version 3)
Quarter: 2020Q4

REPORT INFORMATION
  Report Type: Spontaneous
  Country: US (occurrence: US)
  Receive Date: 20200602
  Receipt Date: 20201005
  Transmission Date: 20210113
  Serious: No
  Sender: FDA-Public Use
  Company Number: US-PFIZER INC-2020214362

PATIENT
  Age: 65 Year
  Sex: Female
  Weight: 114.74 kg

DRUGS (12)
  1. ATORVASTATIN CALCIUM. [Suspect]
     Active Substance: ATORVASTATIN CALCIUM
     Indication: DIABETES MELLITUS
     Dosage: 20 MG, DAILY
     Route: 048
     Dates: start: 20200702, end: 20200814
  2. EPINEPHRINE. [Concomitant]
     Active Substance: EPINEPHRINE
     Indication: MOUTH SWELLING
  3. IBUPROFEN. [Concomitant]
     Active Substance: IBUPROFEN
     Dosage: 800 MG, AS NEEDED (1 TABLET WITH FOOD OR MILK AS NEEDED ORALLY AS NEEDED)
     Route: 048
  4. OLMESARTAN MEDOXOMIL. [Concomitant]
     Active Substance: OLMESARTAN MEDOXOMIL
     Dosage: 20 MG, 1X/DAY
     Route: 048
     Dates: start: 20200821
  5. OMEPRAZOLE. [Concomitant]
     Active Substance: OMEPRAZOLE
     Dosage: 40 MG, 1X/DAY
     Route: 048
  6. FLUOCINOLONE ACETONIDE. [Concomitant]
     Active Substance: FLUOCINOLONE ACETONIDE
     Dosage: 5 DROP, 2X/DAY; 0.01 % OIL; SIG: 5 DROPS INTO AFFECTED EAR OTIC TWICE A DAY
  7. PROBIOTICS [Concomitant]
     Active Substance: PROBIOTICS NOS
     Dosage: UNK
  8. ATORVASTATIN CALCIUM. [Suspect]
     Active Substance: ATORVASTATIN CALCIUM
     Indication: HYPERLIPIDAEMIA
     Dosage: UNK
  9. ROSUVASTATIN. [Concomitant]
     Active Substance: ROSUVASTATIN
     Dosage: UNK
  10. EPINEPHRINE. [Concomitant]
     Active Substance: EPINEPHRINE
     Indication: DYSPNOEA
     Dosage: UNK MG/ML, AS NEEDED (0.3 MG/0.3 ML SOLUTION AUTO INJECTOR)
     Dates: start: 20200814
  11. EPINEPHRINE. [Concomitant]
     Active Substance: EPINEPHRINE
     Indication: PHARYNGEAL SWELLING
  12. HYDRALAZINE HCL [Concomitant]
     Active Substance: HYDRALAZINE HYDROCHLORIDE
     Indication: BLOOD PRESSURE ABNORMAL
     Dosage: 25 MG, AS NEEDED (1 TABLET AS NEEDED IF BP MORE THAN 140 ON TOP ORALLY THREE TIMES A DAY)
     Route: 048
     Dates: start: 20200903

REACTIONS (4)
  - Muscle spasms [Recovered/Resolved]
  - Illness [Unknown]
  - Drug ineffective [Unknown]
  - Diarrhoea [Not Recovered/Not Resolved]

NARRATIVE: CASE EVENT DATE: 20200703
